FAERS Safety Report 21014185 (Version 6)
Quarter: 2023Q4

REPORT INFORMATION
  Report Type: Spontaneous
  Country: JP (occurrence: JP)
  Receive Date: 20220627
  Receipt Date: 20231107
  Transmission Date: 20240109
  Serious: Yes (Other)
  Sender: FDA-Public Use
  Company Number: JP-BRISTOL-MYERS SQUIBB COMPANY-2022-062486

PATIENT
  Age: 72 Year
  Sex: Male

DRUGS (2)
  1. YERVOY [Suspect]
     Active Substance: IPILIMUMAB
     Indication: Renal cell carcinoma
     Route: 041
  2. OPDIVO [Suspect]
     Active Substance: NIVOLUMAB
     Indication: Renal cell carcinoma
     Route: 041

REACTIONS (11)
  - Immune-mediated enterocolitis [Recovering/Resolving]
  - Diarrhoea [Unknown]
  - Gastrointestinal perforation [Unknown]
  - Gastrointestinal wall thickening [Unknown]
  - Cytokine release syndrome [Unknown]
  - Pyrexia [Not Recovered/Not Resolved]
  - Rash [Unknown]
  - Decreased appetite [Unknown]
  - Blood pressure decreased [Not Recovered/Not Resolved]
  - Depressed level of consciousness [Not Recovered/Not Resolved]
  - Renal impairment [Not Recovered/Not Resolved]
